FAERS Safety Report 15539884 (Version 1)
Quarter: 2018Q4

REPORT INFORMATION
  Report Type: Spontaneous
  Country: CN (occurrence: CN)
  Receive Date: 20181023
  Receipt Date: 20181023
  Transmission Date: 20190205
  Serious: Yes (Other)
  Sender: FDA-Public Use
  Company Number: CN-ALKEM LABORATORIES LIMITED-CN-ALKEM-2018-08341

PATIENT
  Age: 83 Year
  Sex: Male

DRUGS (10)
  1. CEFTRIAXONE. [Concomitant]
     Active Substance: CEFTRIAXONE
     Indication: PNEUMONIA
     Dosage: UNK
     Route: 051
  2. GENTAMICIN. [Concomitant]
     Active Substance: GENTAMICIN
     Indication: PLEURAL EFFUSION
  3. LINEZOLID. [Suspect]
     Active Substance: LINEZOLID
     Indication: STAPHYLOCOCCAL INFECTION
     Dosage: 600 MG, BID
     Route: 042
  4. PIPERACILLIN/TAZOBACTAM [Concomitant]
     Active Substance: PIPERACILLIN SODIUM\TAZOBACTAM SODIUM
     Indication: PNEUMONIA
     Dosage: UNK
     Route: 065
  5. BIAPENEM [Concomitant]
     Active Substance: BIAPENEM
     Indication: PLEURAL EFFUSION
  6. CEFTRIAXONE. [Concomitant]
     Active Substance: CEFTRIAXONE
     Indication: PLEURAL EFFUSION
  7. GENTAMICIN. [Concomitant]
     Active Substance: GENTAMICIN
     Indication: PNEUMONIA
     Dosage: UNK
     Route: 065
  8. BIAPENEM [Concomitant]
     Active Substance: BIAPENEM
     Indication: PNEUMONIA
     Dosage: UNK
     Route: 065
  9. LINEZOLID. [Suspect]
     Active Substance: LINEZOLID
     Indication: INFECTIOUS PLEURAL EFFUSION
     Dosage: 600 MG, BID
     Route: 048
  10. PIPERACILLIN/TAZOBACTAM [Concomitant]
     Active Substance: PIPERACILLIN SODIUM\TAZOBACTAM SODIUM
     Indication: PLEURAL EFFUSION

REACTIONS (1)
  - Aplasia pure red cell [Recovered/Resolved]
